FAERS Safety Report 6078782-5 (Version None)
Quarter: 2009Q1

REPORT INFORMATION
  Report Type: 
  Country: None (occurrence: None)
  Receive Date: 20090216
  Receipt Date: 20090114
  Transmission Date: 20090719
  Serious: No
  Sender: FDA-Public Use
  Company Number: US-BAYER-200839978NA

PATIENT
  Age: 23 Year
  Sex: Male

DRUGS (1)
  1. AVELOX [Suspect]
     Indication: SINUSITIS
     Dosage: TOTAL DAILY DOSE: 400 MG  UNIT DOSE: 400 MG

REACTIONS (2)
  - DYSPEPSIA [None]
  - FEELING ABNORMAL [None]
